FAERS Safety Report 8072348-3 (Version None)
Quarter: 2011Q4

REPORT INFORMATION
  Report Type: 
  Country: None (occurrence: None)
  Receive Date: 20111222
  Receipt Date: 20111020
  Transmission Date: 20120403
  Serious: Yes (Hospitalization)
  Sender: FDA-Public Use
  Company Number: UTC-011514

PATIENT
  Age: 46 Year
  Sex: Female

DRUGS (3)
  1. TYVASO [Suspect]
     Indication: COR PULMONALE CHRONIC
     Dosage: 18-54 MICROGRAMS (4 IN 1 D),INHALATION
     Route: 055
     Dates: start: 20100407
  2. REVATIO [Concomitant]
  3. TRACLEER [Concomitant]

REACTIONS (4)
  - SWELLING [None]
  - STRESS [None]
  - DEPRESSION [None]
  - OEDEMA [None]
